FAERS Safety Report 6908477-4 (Version None)
Quarter: 2010Q3

REPORT INFORMATION
  Report Type: 
  Country: None (occurrence: None)
  Receive Date: 20100805
  Receipt Date: 20100727
  Transmission Date: 20110219
  Serious: Yes (Other)
  Sender: FDA-Public Use
  Company Number: NO-PFIZER INC-2010093705

PATIENT
  Age: 61 Year
  Sex: Female

DRUGS (3)
  1. ZOLOFT [Suspect]
     Indication: ANXIETY
     Dosage: 25 MG, 1X/DAY
     Route: 048
     Dates: start: 20100702
  2. ZOLOFT [Suspect]
     Dosage: 50 MG, 1X/DAY
  3. ATARAX [Concomitant]
     Dosage: UNK

REACTIONS (5)
  - ASTHENIA [None]
  - BURNING SENSATION [None]
  - DECREASED APPETITE [None]
  - DIZZINESS [None]
  - HYPOTENSION [None]
